FAERS Safety Report 22274882 (Version 1)
Quarter: 2023Q2

REPORT INFORMATION
  Report Type: Spontaneous
  Country: US (occurrence: US)
  Receive Date: 20230502
  Receipt Date: 20230502
  Transmission Date: 20230721
  Serious: No
  Sender: FDA-Public Use
  Company Number: US-RVL_Pharmaceuticals-USA-POI1255202300034

PATIENT
  Age: 81 Year
  Sex: Female

DRUGS (3)
  1. UPNEEQ [Suspect]
     Active Substance: OXYMETAZOLINE HYDROCHLORIDE
     Indication: Eyelid ptosis
     Dosage: OU
     Route: 047
     Dates: start: 20230119, end: 20230128
  2. OPTASE [Concomitant]
     Active Substance: BALSAM PERU\CASTOR OIL\TRYPSIN
     Indication: Dry eye
  3. LUMIFY [Concomitant]
     Active Substance: BRIMONIDINE TARTRATE
     Indication: Dry eye

REACTIONS (2)
  - Dry eye [Recovered/Resolved]
  - Drug ineffective [Recovered/Resolved]

NARRATIVE: CASE EVENT DATE: 20230119
